FAERS Safety Report 8724719 (Version 2)
Quarter: 2012Q4

REPORT INFORMATION
  Report Type: 
  Country: FR (occurrence: FR)
  Receive Date: 20120815
  Receipt Date: 20121025
  Transmission Date: 20130627
  Serious: Yes (Life-Threatening, Disabling, Other)
  Sender: FDA-Public Use
  Company Number: FR-AMGEN-FRASP2012050883

PATIENT
  Age: 66 Year
  Sex: Female
  Weight: 45 kg

DRUGS (4)
  1. ENBREL [Suspect]
     Indication: RHEUMATOID ARTHRITIS
     Dosage: UNK
     Route: 058
     Dates: start: 200612
  2. DIAMICRON [Concomitant]
     Indication: TYPE 2 DIABETES MELLITUS
     Dosage: 15 mg, 1x/day
     Route: 048
     Dates: start: 2004
  3. SOTALEX [Concomitant]
     Indication: HYPERTENSION
     Dosage: 80 mg, 1x/day
     Route: 048
     Dates: start: 1999
  4. SOTALEX [Concomitant]
     Indication: TACHYCARDIA

REACTIONS (1)
  - Diffuse large B-cell lymphoma [Not Recovered/Not Resolved]
